FAERS Safety Report 17555139 (Version 3)
Quarter: 2020Q2

REPORT INFORMATION
  Report Type: Report from Study
  Country: GB (occurrence: GB)
  Receive Date: 20200318
  Receipt Date: 20200519
  Transmission Date: 20200713
  Serious: Yes (Other)
  Sender: FDA-Public Use
  Company Number: GB-JNJFOC-20200309713

PATIENT
  Age: 35 Year
  Sex: Female
  Weight: 39 kg

DRUGS (5)
  1. SEPTRIN [Concomitant]
     Active Substance: SULFAMETHOXAZOLE\TRIMETHOPRIM
     Indication: PROPHYLAXIS
     Dosage: MONDAY AND THURSDAY
     Dates: start: 2018
  2. EXJADE [Concomitant]
     Active Substance: DEFERASIROX
     Indication: IRON OVERLOAD
     Dates: start: 2019
  3. DARATUMUMAB [Suspect]
     Active Substance: DARATUMUMAB
     Indication: APLASIA PURE RED CELL
     Dosage: WEEKLY FOR 6 WEEKS
     Route: 042
     Dates: start: 20200128, end: 20200227
  4. LANSOPRAZOLE. [Concomitant]
     Active Substance: LANSOPRAZOLE
     Indication: GASTROOESOPHAGEAL REFLUX DISEASE
     Dates: start: 2019
  5. ACICLOVIR [Concomitant]
     Active Substance: ACYCLOVIR
     Indication: PROPHYLAXIS
     Dates: start: 2018

REACTIONS (6)
  - Off label use [Unknown]
  - Product use in unapproved indication [Unknown]
  - Pyrexia [Recovered/Resolved]
  - Bronchospasm [Recovered/Resolved]
  - Infusion related reaction [Recovered/Resolved]
  - Acute myopia [Recovered/Resolved]

NARRATIVE: CASE EVENT DATE: 20200128
